FAERS Safety Report 15550771 (Version 1)
Quarter: 2018Q4

REPORT INFORMATION
  Report Type: Spontaneous
  Country: IT (occurrence: IT)
  Receive Date: 20181025
  Receipt Date: 20181025
  Transmission Date: 20190205
  Serious: Yes (Life-Threatening)
  Sender: FDA-Public Use
  Company Number: IT-EMD SERONO-E2B_90062501

PATIENT
  Age: 38 Year
  Sex: Male
  Weight: 67 kg

DRUGS (1)
  1. REBIF [Suspect]
     Active Substance: INTERFERON BETA-1A
     Indication: MULTIPLE SCLEROSIS
     Route: 058

REACTIONS (2)
  - Acute kidney injury [Not Recovered/Not Resolved]
  - Atypical haemolytic uraemic syndrome [Not Recovered/Not Resolved]

NARRATIVE: CASE EVENT DATE: 20180713
